FAERS Safety Report 6908290-8 (Version None)
Quarter: 2010Q3

REPORT INFORMATION
  Report Type: 
  Country: None (occurrence: None)
  Receive Date: 20100805
  Receipt Date: 20100728
  Transmission Date: 20110219
  Serious: Yes (Hospitalization)
  Sender: FDA-Public Use
  Company Number: CH-ROCHE-717993

PATIENT
  Age: 62 Year
  Sex: Male

DRUGS (4)
  1. XELODA [Suspect]
     Route: 051
     Dates: start: 20100101
  2. TILUR [Suspect]
     Indication: ANALGESIC THERAPY
     Route: 048
     Dates: start: 20100601, end: 20100601
  3. EPIRUBICIN [Suspect]
     Route: 051
     Dates: start: 20100101
  4. OXALIPLATIN [Suspect]
     Route: 051
     Dates: start: 20100101

REACTIONS (1)
  - NEPHROTIC SYNDROME [None]
